FAERS Safety Report 9961653 (Version 1)
Quarter: 2014Q1

REPORT INFORMATION
  Report Type: Report from Study
  Country: US (occurrence: US)
  Receive Date: 20140305
  Receipt Date: 20140305
  Transmission Date: 20141002
  Serious: Yes (Hospitalization)
  Sender: FDA-Public Use
  Company Number: US-ABBVIE-13P-163-1113148-00

PATIENT
  Age: 60 Year
  Sex: Female

DRUGS (9)
  1. HUMIRA [Suspect]
     Indication: PSORIASIS
  2. HUMIRA [Suspect]
     Dates: start: 20130627, end: 20130627
  3. HUMIRA [Suspect]
  4. BAYER ASPIRIN [Concomitant]
     Indication: PRODUCT USED FOR UNKNOWN INDICATION
  5. PIOGLITAZONE [Concomitant]
     Indication: DIABETES MELLITUS
  6. BENICAR [Concomitant]
     Indication: HYPERTENSION
     Dosage: 20/12.5 CTT
  7. PRAVASTATIN [Concomitant]
     Indication: BLOOD CHOLESTEROL
  8. METOPROLOL [Concomitant]
     Indication: HYPERTENSION
  9. NEXIUM [Concomitant]
     Indication: GASTROOESOPHAGEAL REFLUX DISEASE

REACTIONS (3)
  - Pneumonia [Recovered/Resolved]
  - Nasopharyngitis [Not Recovered/Not Resolved]
  - Psoriasis [Not Recovered/Not Resolved]
